FAERS Safety Report 8330240-0 (Version None)
Quarter: 2012Q2

REPORT INFORMATION
  Report Type: 
  Country: None (occurrence: None)
  Receive Date: 20120430
  Receipt Date: 20120420
  Transmission Date: 20120825
  Serious: Yes (Life-Threatening)
  Sender: FDA-Public Use
  Company Number: 2012SP021163

PATIENT
  Age: 74 Year
  Sex: Male

DRUGS (8)
  1. PROPOFOL [Suspect]
     Indication: PRODUCT USED FOR UNKNOWN INDICATION
     Dosage: 160 MG;ONCE;IV
     Route: 042
     Dates: start: 20120327, end: 20120327
  2. ROPIVACAINE HYDROCHLORIDE [Suspect]
     Indication: PRODUCT USED FOR UNKNOWN INDICATION
     Dosage: 6 ML;ONCE;ED
     Dates: start: 20120327, end: 20120327
  3. ACETAMINOPHEN [Suspect]
     Indication: PRODUCT USED FOR UNKNOWN INDICATION
     Dosage: 1 GM;ONCE;IV
     Route: 042
     Dates: start: 20120327, end: 20120327
  4. ESMERON (ROCURONIUM BROMIDE /01245702/) [Suspect]
     Indication: PRODUCT USED FOR UNKNOWN INDICATION
     Dosage: 50 MG;ONCE;IV
     Route: 042
     Dates: start: 20120327, end: 20120327
  5. DESFLURANE [Suspect]
     Indication: PRODUCT USED FOR UNKNOWN INDICATION
     Dosage: INH
     Route: 055
     Dates: start: 20120327, end: 20120327
  6. KETAMINE HCL [Suspect]
     Dosage: 12 MG;ONCE;IV
     Route: 042
     Dates: start: 20120327, end: 20120327
  7. PROCORALAN (IVABRADINE HYDROCHLORIDE) [Suspect]
     Indication: TACHYCARDIA
     Dosage: 7.5 MG;QD;PO
     Route: 048
     Dates: start: 20120327, end: 20120327
  8. SUFENTA PRESERVATIVE FREE [Suspect]
     Indication: PRODUCT USED FOR UNKNOWN INDICATION
     Dosage: 20 MCG;ONCE;IV
     Route: 042
     Dates: start: 20120327, end: 20120327

REACTIONS (4)
  - CARDIAC ARREST [None]
  - SINOATRIAL BLOCK [None]
  - NO THERAPEUTIC RESPONSE [None]
  - CIRCULATORY COLLAPSE [None]
